FAERS Safety Report 15909402 (Version 1)
Quarter: 2019Q1

REPORT INFORMATION
  Report Type: Spontaneous
  Country: US (occurrence: US)
  Receive Date: 20190204
  Receipt Date: 20190204
  Transmission Date: 20190417
  Serious: No
  Sender: FDA-Public Use
  Company Number: US-ABBVIE-18K-163-2276724-00

PATIENT
  Age: 57 Year
  Sex: Female

DRUGS (8)
  1. HUMIRA [Suspect]
     Active Substance: ADALIMUMAB
     Indication: RHEUMATOID ARTHRITIS
     Route: 058
     Dates: end: 2017
  2. LEVOTHYROXINE. [Concomitant]
     Active Substance: LEVOTHYROXINE
     Indication: HYPOTHYROIDISM
  3. SLOW MAG [Concomitant]
     Active Substance: MAGNESIUM CHLORIDE
     Indication: PRODUCT USED FOR UNKNOWN INDICATION
  4. HUMIRA [Suspect]
     Active Substance: ADALIMUMAB
     Route: 058
     Dates: start: 2017
  5. ENBREL [Suspect]
     Active Substance: ETANERCEPT
     Indication: RHEUMATOID ARTHRITIS
     Route: 065
     Dates: start: 2017, end: 2017
  6. NEXIUM [Concomitant]
     Active Substance: ESOMEPRAZOLE MAGNESIUM
     Indication: PRODUCT USED FOR UNKNOWN INDICATION
  7. TRIAMTERENE. [Concomitant]
     Active Substance: TRIAMTERENE
     Indication: FLUID RETENTION
  8. MOTRIN [Concomitant]
     Active Substance: IBUPROFEN
     Indication: PRODUCT USED FOR UNKNOWN INDICATION

REACTIONS (12)
  - Muscle tightness [Not Recovered/Not Resolved]
  - Headache [Not Recovered/Not Resolved]
  - Gait disturbance [Recovered/Resolved]
  - C-reactive protein increased [Not Recovered/Not Resolved]
  - Injection site pain [Not Recovered/Not Resolved]
  - Muscular weakness [Not Recovered/Not Resolved]
  - Gait disturbance [Not Recovered/Not Resolved]
  - Pain in extremity [Recovered/Resolved]
  - Joint swelling [Recovering/Resolving]
  - Joint effusion [Unknown]
  - Drug ineffective [Not Recovered/Not Resolved]
  - Wrong technique in product usage process [Unknown]

NARRATIVE: CASE EVENT DATE: 2017
